FAERS Safety Report 21927104 (Version 1)
Quarter: 2023Q1

REPORT INFORMATION
  Report Type: Spontaneous
  Country: NO (occurrence: NO)
  Receive Date: 20230130
  Receipt Date: 20230130
  Transmission Date: 20230418
  Serious: Yes (Disabling)
  Sender: FDA-Public Use
  Company Number: NO-AMGEN-NORSP2023011454

PATIENT
  Age: 21 Year
  Sex: Male

DRUGS (1)
  1. XGEVA [Suspect]
     Active Substance: DENOSUMAB
     Indication: Bone giant cell tumour
     Dosage: 120 MILLIGRAM, Q2MO
     Route: 065
     Dates: start: 20130305, end: 20210705

REACTIONS (3)
  - Tooth resorption [Not Recovered/Not Resolved]
  - Tooth loss [Not Recovered/Not Resolved]
  - Off label use [Unknown]

NARRATIVE: CASE EVENT DATE: 20130305
